FAERS Safety Report 11491618 (Version 2)
Quarter: 2022Q1

REPORT INFORMATION
  Report Type: Spontaneous
  Country: IT (occurrence: IT)
  Receive Date: 20150910
  Receipt Date: 20220329
  Transmission Date: 20220423
  Serious: Yes (Congenital Anomaly, Other)
  Sender: FDA-Public Use
  Company Number: PHHY2015IT108049

PATIENT
  Sex: Male
  Weight: 3.1 kg

DRUGS (1)
  1. CARBAMAZEPINE [Suspect]
     Active Substance: CARBAMAZEPINE
     Indication: Foetal exposure during pregnancy
     Dosage: MATERNAL DOSE: UNKNOWN
     Route: 064

REACTIONS (6)
  - Atrial septal defect [Recovered/Resolved]
  - Dysmorphism [Unknown]
  - Facial paralysis [Unknown]
  - Ventricular septal defect [Recovered/Resolved]
  - Congenital arterial malformation [Recovered/Resolved]
  - Foetal exposure during pregnancy [Unknown]
